FAERS Safety Report 11238031 (Version 1)
Quarter: 2015Q3

REPORT INFORMATION
  Report Type: Spontaneous
  Country: DE (occurrence: DE)
  Receive Date: 20150703
  Receipt Date: 20150703
  Transmission Date: 20151125
  Serious: Yes (Disabling)
  Sender: FDA-Public Use
  Company Number: DE-TEVA-575358GER

PATIENT
  Age: 86 Year
  Sex: Female

DRUGS (2)
  1. VITAMIN D [Concomitant]
     Active Substance: CHOLECALCIFEROL
     Route: 048
  2. RALOXIFEN TEVA [Suspect]
     Active Substance: RALOXIFENE
     Indication: OSTEOPOROTIC FRACTURE
     Dosage: 1 DOSAGE FORMS DAILY;
     Route: 048
     Dates: start: 20130815, end: 20150217

REACTIONS (2)
  - Thoracic vertebral fracture [Not Recovered/Not Resolved]
  - Lumbar vertebral fracture [Not Recovered/Not Resolved]

NARRATIVE: CASE EVENT DATE: 201408
